FAERS Safety Report 7608523-9 (Version None)
Quarter: 2011Q3

REPORT INFORMATION
  Report Type: 
  Country: None (occurrence: None)
  Receive Date: 20110713
  Receipt Date: 20110713
  Transmission Date: 20111222
  Serious: Yes (Hospitalization)
  Sender: FDA-Public Use
  Company Number: None

PATIENT
  Age: 86 Year
  Sex: Male
  Weight: 82.2 kg

DRUGS (2)
  1. MELOXICAM [Suspect]
     Indication: ARTHRALGIA
     Dosage: 15 MG EVERY DAY PO
     Route: 048
     Dates: start: 20101028, end: 20110116
  2. ASPIRIN [Suspect]
     Indication: PROPHYLAXIS
     Dosage: 81 MG EVERY DAY PO
     Route: 048
     Dates: end: 20110116

REACTIONS (1)
  - GASTROINTESTINAL HAEMORRHAGE [None]
